FAERS Safety Report 4897073-9 (Version None)
Quarter: 2006Q1

REPORT INFORMATION
  Report Type: 
  Country: None (occurrence: None)
  Receive Date: 20060127
  Receipt Date: 20060111
  Transmission Date: 20060701
  Serious: Yes (Other)
  Sender: FDA-Public Use
  Company Number: 200601IM000056

PATIENT
  Sex: Male

DRUGS (1)
  1. IMMUKIN (INTERFERON GAMMA-1B) [Suspect]

REACTIONS (3)
  - ABNORMAL BEHAVIOUR [None]
  - AMNESIA [None]
  - SEXUAL OFFENCE [None]
